FAERS Safety Report 14122506 (Version 3)
Quarter: 2018Q2

REPORT INFORMATION
  Report Type: Report from Study
  Country: US (occurrence: US)
  Receive Date: 20171024
  Receipt Date: 20180403
  Transmission Date: 20180711
  Serious: Yes (Other)
  Sender: FDA-Public Use
  Company Number: US-ACTELION-A-NJ2017-157001

PATIENT
  Age: 66 Year
  Sex: Female
  Weight: 60.32 kg

DRUGS (6)
  1. OXYGEN. [Concomitant]
     Active Substance: OXYGEN
  2. LISINOPRIL. [Concomitant]
     Active Substance: LISINOPRIL
  3. OPSUMIT [Suspect]
     Active Substance: MACITENTAN
     Indication: PULMONARY ARTERIAL HYPERTENSION
     Dosage: 10 MG, QD
     Route: 048
     Dates: start: 20170619
  4. SILDENAFIL. [Concomitant]
     Active Substance: SILDENAFIL
     Indication: PULMONARY ARTERIAL HYPERTENSION
  5. REMODULIN [Concomitant]
     Active Substance: TREPROSTINIL
     Dosage: UNK
     Route: 058
     Dates: start: 20171011
  6. NIFEDIPINE. [Concomitant]
     Active Substance: NIFEDIPINE

REACTIONS (11)
  - Radiotherapy [Unknown]
  - Pulmonary hypertension [Unknown]
  - Catheter site erythema [Unknown]
  - Blood pressure decreased [Unknown]
  - Lung neoplasm malignant [Unknown]
  - Oedema [Unknown]
  - Peripheral swelling [Recovering/Resolving]
  - Therapy non-responder [Not Recovered/Not Resolved]
  - Fatigue [Unknown]
  - Drug ineffective [Not Recovered/Not Resolved]
  - Catheter site extravasation [Unknown]

NARRATIVE: CASE EVENT DATE: 20171016
